FAERS Safety Report 10658535 (Version 2)
Quarter: 2014Q4

REPORT INFORMATION
  Report Type: Spontaneous
  Country: US (occurrence: US)
  Receive Date: 20141217
  Receipt Date: 20141217
  Transmission Date: 20150529
  Serious: No
  Sender: FDA-Public Use
  Company Number: US-GLAXOSMITHKLINE-A1068577A

PATIENT

DRUGS (1)
  1. VOTRIENT [Suspect]
     Active Substance: PAZOPANIB HYDROCHLORIDE
     Indication: RENAL CANCER
     Dosage: 200 MG, 4 TABLETS DAILY
     Route: 065

REACTIONS (12)
  - Fatigue [Unknown]
  - Infrequent bowel movements [Unknown]
  - Stomatitis [Unknown]
  - Salivary hypersecretion [Unknown]
  - Secretion discharge [Unknown]
  - Diarrhoea [Recovered/Resolved]
  - Frequent bowel movements [Recovered/Resolved]
  - Asthenia [Unknown]
  - Gastric disorder [Unknown]
  - Headache [Unknown]
  - Dysgeusia [Unknown]
  - Decreased appetite [Unknown]

NARRATIVE: CASE EVENT DATE: 201403
